FAERS Safety Report 4460406-1 (Version None)
Quarter: 2004Q3

REPORT INFORMATION
  Report Type: 
  Country: None (occurrence: None)
  Receive Date: 20040928
  Receipt Date: 20040526
  Transmission Date: 20050211
  Serious: No
  Sender: FDA-Public Use
  Company Number: US-GLAXOSMITHKLINE-A0512219A

PATIENT
  Age: 80 Year
  Sex: Female

DRUGS (2)
  1. SEREVENT [Suspect]
     Dosage: 1PUFF IN THE MORNING
     Route: 055
     Dates: start: 20040524, end: 20040526
  2. COMBIVENT [Concomitant]

REACTIONS (2)
  - CHEST PAIN [None]
  - DRY MOUTH [None]
